FAERS Safety Report 9664937 (Version 1)
Quarter: 2013Q4

REPORT INFORMATION
  Report Type: Report from Study
  Country: US (occurrence: US)
  Receive Date: 20131101
  Receipt Date: 20131101
  Transmission Date: 20140711
  Serious: Yes (Hospitalization)
  Sender: FDA-Public Use
  Company Number: US-ABBVIE-13P-163-1161667-00

PATIENT
  Sex: Female
  Weight: 67.19 kg

DRUGS (17)
  1. HYDROCODONE W/APAP [Concomitant]
     Indication: PAIN
  2. METOPROLOL [Concomitant]
     Indication: HEART RATE IRREGULAR
     Dates: start: 201310
  3. HUMIRA [Suspect]
     Indication: RHEUMATOID ARTHRITIS
     Route: 058
     Dates: start: 201209, end: 20130910
  4. HUMIRA [Suspect]
     Route: 058
     Dates: start: 20131008
  5. PREDNISON [Suspect]
     Indication: RHEUMATOID ARTHRITIS
  6. CALCIUM + VIT D [Concomitant]
     Indication: PRODUCT USED FOR UNKNOWN INDICATION
     Dosage: 600/400MG DAILY
  7. CYMBALTA [Concomitant]
     Indication: ANXIETY
  8. FOLIC ACID [Concomitant]
     Indication: VITAMIN SUPPLEMENTATION
  9. MULTIVITAMINS [Concomitant]
     Indication: PRODUCT USED FOR UNKNOWN INDICATION
     Dosage: DAILY
  10. LORTAB [Concomitant]
     Indication: PRODUCT USED FOR UNKNOWN INDICATION
     Dosage: 5/500MG, 2 EVERY 12 HOURS
  11. LORTAB [Concomitant]
     Dosage: 5/500MG EVERY 4 HOURS
  12. METFORMIN [Concomitant]
     Indication: BLOOD GLUCOSE INCREASED
     Dosage: 1000MG EVERY MORNING, 500MG EVERY EVENING
     Dates: start: 2012
  13. METHOTREXAAT [Concomitant]
     Indication: RHEUMATOID ARTHRITIS
     Dosage: 2.5MG, 10 TABS, EVERY WEEK
  14. TOPROL [Concomitant]
     Indication: PRODUCT USED FOR UNKNOWN INDICATION
  15. XARELTO [Concomitant]
     Indication: PRODUCT USED FOR UNKNOWN INDICATION
  16. BIOFREEZE [Concomitant]
     Indication: ARTHRALGIA
     Route: 061
  17. XANAX [Concomitant]
     Indication: ANXIETY

REACTIONS (6)
  - Osteoarthritis [Unknown]
  - Rheumatoid arthritis [Not Recovered/Not Resolved]
  - Blood glucose increased [Recovering/Resolving]
  - Anaemia [Recovering/Resolving]
  - Wrong technique in drug usage process [Unknown]
  - Drug dose omission [Unknown]
